FAERS Safety Report 5494817-2 (Version None)
Quarter: 2007Q4

REPORT INFORMATION
  Report Type: 
  Country: None (occurrence: None)
  Receive Date: 20071024
  Receipt Date: 20071012
  Transmission Date: 20080405
  Serious: Yes (Other)
  Sender: FDA-Public Use
  Company Number: HQWYE135710AUG04

PATIENT
  Sex: Female

DRUGS (5)
  1. PREMPRO [Suspect]
  2. ESTROGENS [Suspect]
  3. ESTRADIOL [Suspect]
  4. CONJUGATED ESTROGENS [Suspect]
  5. PROVERA [Suspect]

REACTIONS (6)
  - BREAST CANCER METASTATIC [None]
  - DRUG HYPERSENSITIVITY [None]
  - HERPES ZOSTER OPHTHALMIC [None]
  - INFECTION [None]
  - LYMPHOEDEMA [None]
  - NERVE INJURY [None]
